FAERS Safety Report 4958441-X (Version None)
Quarter: 2006Q1

REPORT INFORMATION
  Report Type: 
  Country: None (occurrence: None)
  Receive Date: 20060127
  Receipt Date: 20050823
  Transmission Date: 20060701
  Serious: Yes (Hospitalization)
  Sender: FDA-Public Use
  Company Number: 05-08-1482

PATIENT
  Age: 35 Year
  Sex: Female

DRUGS (5)
  1. CLOZAPINE [Suspect]
     Indication: PERSONALITY DISORDER
     Dosage: 75 MG QAM, 225MG QHS, ORAL
     Route: 048
     Dates: start: 20020201
  2. NAVANE [Suspect]
     Dosage: SEE IMAGE
  3. BENZTROPINE MESYLATE [Concomitant]
  4. BUPROPION HCL [Concomitant]
  5. CLONIDINE [Concomitant]

REACTIONS (4)
  - ABNORMAL BEHAVIOUR [None]
  - HALLUCINATION, AUDITORY [None]
  - HALLUCINATION, VISUAL [None]
  - SUICIDAL IDEATION [None]
